FAERS Safety Report 6727475-7 (Version None)
Quarter: 2010Q2

REPORT INFORMATION
  Report Type: 
  Country: None (occurrence: None)
  Receive Date: 20100517
  Receipt Date: 20100505
  Transmission Date: 20101027
  Serious: Yes (Congenital Anomaly)
  Sender: FDA-Public Use
  Company Number: IT-SANOFI-AVENTIS-2010SA026081

PATIENT
  Sex: Male

DRUGS (1)
  1. FERLIXIT [Suspect]
     Indication: DRUG USE FOR UNKNOWN INDICATION
     Route: 041
     Dates: start: 19930101, end: 19930101

REACTIONS (1)
  - CONGENITAL BRAIN DAMAGE [None]
